FAERS Safety Report 8099840-X (Version None)
Quarter: 2012Q1

REPORT INFORMATION
  Report Type: 
  Country: None (occurrence: None)
  Receive Date: 20120129
  Receipt Date: 20111010
  Transmission Date: 20120608
  Serious: No
  Sender: FDA-Public Use
  Company Number: US-ABBOTT-11P-163-0862647-00

PATIENT
  Sex: Male
  Weight: 90.8 kg

DRUGS (14)
  1. PENTASA [Concomitant]
     Indication: CROHN'S DISEASE
  2. LISINOPRIL [Concomitant]
     Indication: HYPERTENSION
  3. VITAMIN B-12 [Concomitant]
     Indication: VITAMIN SUPPLEMENTATION
  4. HUMIRA [Suspect]
     Indication: CROHN'S DISEASE
     Dosage: (160 MG, LOADING DOSE)
     Dates: start: 20110916, end: 20110916
  5. PANTOPRAZOLE [Concomitant]
     Indication: GASTROOESOPHAGEAL REFLUX DISEASE
  6. MULTI-VITAMINS [Concomitant]
     Indication: VITAMIN SUPPLEMENTATION
  7. GLUCOSAMINE + CHONDROITIN [Concomitant]
     Indication: PRODUCT USED FOR UNKNOWN INDICATION
  8. TRIAMTERENE AND HYDROCHLOROTHIAZIDE [Concomitant]
     Indication: HYPERTENSION
  9. HUMIRA [Suspect]
     Dosage: (80 MG, SECOND LOADING DOSE)
     Dates: start: 20111001, end: 20111001
  10. CARVEDILOL [Concomitant]
     Indication: CARDIAC DISORDER
  11. KLOR-CON [Concomitant]
     Indication: BLOOD POTASSIUM DECREASED
  12. VITAMIN D [Concomitant]
     Indication: VITAMIN SUPPLEMENTATION
  13. ASCORBIC ACID [Concomitant]
     Indication: VITAMIN SUPPLEMENTATION
  14. CALCIUM [Concomitant]
     Indication: MINERAL SUPPLEMENTATION

REACTIONS (2)
  - DRY SKIN [None]
  - SKIN EXFOLIATION [None]
